FAERS Safety Report 10619812 (Version 2)
Quarter: 2014Q4

REPORT INFORMATION
  Report Type: Report from Study
  Country: US (occurrence: US)
  Receive Date: 20141202
  Receipt Date: 20141202
  Transmission Date: 20150529
  Serious: Yes (Hospitalization, Other)
  Sender: FDA-Public Use
  Company Number: US-ABBVIE-14K-163-1309150-00

PATIENT
  Sex: Male
  Weight: 99.88 kg

DRUGS (7)
  1. REMERON [Concomitant]
     Active Substance: MIRTAZAPINE
     Indication: INSOMNIA
  2. RHINOCORT [Concomitant]
     Active Substance: BUDESONIDE
     Indication: HYPERSENSITIVITY
  3. VALIUM [Concomitant]
     Active Substance: DIAZEPAM
     Indication: DRUG DEPENDENCE
  4. HUMIRA [Suspect]
     Active Substance: ADALIMUMAB
     Route: 065
  5. NEXIUM [Concomitant]
     Active Substance: ESOMEPRAZOLE MAGNESIUM
     Indication: GASTROOESOPHAGEAL REFLUX DISEASE
  6. HUMIRA [Suspect]
     Active Substance: ADALIMUMAB
     Indication: CROHN^S DISEASE
     Route: 065
     Dates: start: 201212
  7. AUGMENTIN [Suspect]
     Active Substance: AMOXICILLIN\CLAVULANATE POTASSIUM
     Indication: MALAISE
     Route: 065

REACTIONS (7)
  - Crohn^s disease [Recovering/Resolving]
  - Tooth fracture [Recovered/Resolved]
  - Incisional hernia [Recovered/Resolved]
  - Malaise [Recovering/Resolving]
  - Knee arthroplasty [Unknown]
  - Post procedural complication [Not Recovered/Not Resolved]
  - Arthritis [Recovered/Resolved]

NARRATIVE: CASE EVENT DATE: 2013
